FAERS Safety Report 6391540-7 (Version None)
Quarter: 2009Q4

REPORT INFORMATION
  Report Type: 
  Country: None (occurrence: None)
  Receive Date: 20091005
  Receipt Date: 20090925
  Transmission Date: 20100525
  Serious: Yes (Other)
  Sender: FDA-Public Use
  Company Number: CIO09002150

PATIENT
  Age: 7 Year
  Sex: Male
  Weight: 30.4 kg

DRUGS (3)
  1. CREST W/ FLUORIDE [Suspect]
     Indication: DENTAL DISORDER PROPHYLAXIS
     Dosage: 1 APPLIC, 2/DAY FOR 7 DAYS, INTRAORAL
     Route: 048
     Dates: start: 20090120, end: 20090127
  2. ALLEGRA [Concomitant]
  3. PEPCID [Concomitant]

REACTIONS (2)
  - ANAPHYLACTIC REACTION [None]
  - ASTHMA [None]
